FAERS Safety Report 5391519-8 (Version None)
Quarter: 2007Q3

REPORT INFORMATION
  Report Type: 
  Country: None (occurrence: None)
  Receive Date: 20070719
  Receipt Date: 20070708
  Transmission Date: 20080115
  Serious: Yes (Hospitalization, Other)
  Sender: FDA-Public Use
  Company Number: US-PFIZER INC-2007055651

PATIENT
  Sex: Male
  Weight: 54.4 kg

DRUGS (7)
  1. GEODON [Suspect]
     Indication: LENNOX-GASTAUT SYNDROME
  2. TEGRETOL [Suspect]
     Indication: LENNOX-GASTAUT SYNDROME
     Dosage: DAILY DOSE:1100MG
     Dates: start: 19990101, end: 20070630
  3. TOPAMAX [Suspect]
     Indication: LENNOX-GASTAUT SYNDROME
     Dosage: DAILY DOSE:300MG
  4. TENEX [Concomitant]
  5. FAMOTIDINE [Concomitant]
  6. SENNA [Concomitant]
  7. MULTIVITAMIN [Concomitant]

REACTIONS (13)
  - CONFUSIONAL STATE [None]
  - DYSKINESIA [None]
  - EYE DISORDER [None]
  - GAZE PALSY [None]
  - MEDICATION ERROR [None]
  - MUSCLE TWITCHING [None]
  - MYDRIASIS [None]
  - PHARYNGITIS STREPTOCOCCAL [None]
  - PYREXIA [None]
  - RESTLESSNESS [None]
  - THERAPEUTIC AGENT TOXICITY [None]
  - TREMOR [None]
  - VOMITING [None]
